FAERS Safety Report 25031259 (Version 1)
Quarter: 2025Q1

REPORT INFORMATION
  Report Type: Spontaneous
  Country: US (occurrence: None)
  Receive Date: 20250228
  Receipt Date: 20250228
  Transmission Date: 20250409
  Serious: Yes (Hospitalization, Disabling)
  Sender: FDA-CTU
  Company Number: None

PATIENT
  Age: 26 Year
  Sex: Male
  Weight: 77.4 kg

DRUGS (1)
  1. MOXIFLOXACIN [Suspect]
     Active Substance: MOXIFLOXACIN
     Indication: Mycoplasma genitalium infection
     Route: 048
     Dates: start: 20241001, end: 20241007

REACTIONS (8)
  - Dizziness [None]
  - Nausea [None]
  - Asthenia [None]
  - Neuropathy peripheral [None]
  - Muscle twitching [None]
  - Visual impairment [None]
  - Tendonitis [None]
  - Malaise [None]

NARRATIVE: CASE EVENT DATE: 20241001
